FAERS Safety Report 21284155 (Version 1)
Quarter: 2022Q3

REPORT INFORMATION
  Report Type: Report from Study
  Country: CN (occurrence: CN)
  Receive Date: 20220902
  Receipt Date: 20220902
  Transmission Date: 20221027
  Serious: Yes (Other)
  Sender: FDA-Public Use
  Company Number: CN-SUN PHARMACEUTICAL INDUSTRIES LTD-2022R1-353026

PATIENT
  Age: 63 Year
  Sex: Female

DRUGS (6)
  1. TEMOZOLOMIDE [Suspect]
     Active Substance: TEMOZOLOMIDE
     Indication: Central nervous system lymphoma
     Dosage: UNK,EVERY 4 WEEKS
     Route: 065
     Dates: start: 20210730, end: 20211214
  2. METHOTREXATE [Suspect]
     Active Substance: METHOTREXATE
     Indication: Central nervous system lymphoma
     Dosage: 3.5 GRAM PER HOUR PER SQUARE METRE OVER 4 HOURS ON DAY 2 HIGH-DOSE
     Route: 065
     Dates: start: 20210730, end: 20211214
  3. ORELABRUTINIB [Suspect]
     Active Substance: ORELABRUTINIB
     Indication: Central nervous system lymphoma
     Dosage: 150 MILLIGRAM, DAILY
     Route: 048
     Dates: start: 20210730, end: 20211214
  4. RITUXIMAB [Suspect]
     Active Substance: RITUXIMAB
     Indication: Central nervous system lymphoma
     Dosage: UNK,375 MG/M2
     Route: 042
     Dates: start: 20210730, end: 20211214
  5. LEUCOVORIN [Concomitant]
     Active Substance: LEUCOVORIN
     Indication: Central nervous system lymphoma
     Dosage: 50 MILLIGRAM, QID
     Route: 030
  6. PREDNISONE [Concomitant]
     Active Substance: PREDNISONE
     Indication: Central nervous system lymphoma
     Dosage: 10 MILLIGRAM, WEEKLY
     Route: 065

REACTIONS (1)
  - Disease progression [Unknown]
